FAERS Safety Report 9785862 (Version 1)
Quarter: 2013Q4

REPORT INFORMATION
  Report Type: Spontaneous
  Country: IT (occurrence: None)
  Receive Date: 20131223
  Receipt Date: 20131223
  Transmission Date: 20140711
  Serious: Yes (Other)
  Sender: FDA-Public Use
  Company Number: B0954501A

PATIENT
  Age: 81 Year
  Sex: Female

DRUGS (10)
  1. PAROXETINE HYDROCHLORIDE [Suspect]
     Indication: PRODUCT USED FOR UNKNOWN INDICATION
  2. AMITRIPTYLINE [Suspect]
     Indication: PAIN
  3. OXYCODONE [Suspect]
     Indication: PAIN
  4. NALOXONE [Suspect]
     Indication: PAIN
  5. ALLOPURINOL [Concomitant]
  6. AMLODIPINE [Concomitant]
  7. LOSARTAN POTASSIUM [Concomitant]
  8. ASPIRIN [Concomitant]
  9. NITROGLYCERINE [Concomitant]
  10. SIMVASTATIN [Concomitant]

REACTIONS (2)
  - Delirium [None]
  - Iatrogenic injury [None]
